FAERS Safety Report 18919193 (Version 1)
Quarter: 2021Q1

REPORT INFORMATION
  Report Type: Report from Study
  Country: US (occurrence: US)
  Receive Date: 20210220
  Receipt Date: 20210220
  Transmission Date: 20210420
  Serious: Yes (Other)
  Sender: FDA-Public Use
  Company Number: NVSC2021US040439

PATIENT
  Sex: Female
  Weight: 86.71 kg

DRUGS (5)
  1. XOLAIR [Suspect]
     Active Substance: OMALIZUMAB
     Indication: ASTHMA
     Dosage: 150 MG, IN BOTH ARMS
     Route: 058
     Dates: start: 2011
  2. IPRATROPIUM BROMIDE AND SALBUTAMOL SULFATE [Concomitant]
     Active Substance: ALBUTEROL SULFATE\IPRATROPIUM BROMIDE
     Indication: ASTHMA
     Dosage: ONE NEBULIZER TREATMENT AS NEEDED (0.5MG/3 MG/3 ML)
     Route: 055
     Dates: start: 2011
  3. MUCINEX [Concomitant]
     Active Substance: GUAIFENESIN
     Indication: LOWER RESPIRATORY TRACT CONGESTION
     Dosage: 600 MG, Q12H,USUALLY FOR NO MORE THAN 2 DAYS
     Route: 048
  4. ALBUTEROL SULFATE. [Concomitant]
     Active Substance: ALBUTEROL SULFATE
     Indication: ASTHMA
     Dosage: UNK
     Route: 065
     Dates: start: 2011, end: 2011
  5. PREDNISONE. [Suspect]
     Active Substance: PREDNISONE
     Indication: ASTHMA
     Dosage: UNK
     Route: 065
     Dates: start: 2011, end: 2014

REACTIONS (4)
  - Steroid diabetes [Not Recovered/Not Resolved]
  - Weight increased [Recovered/Resolved]
  - Drug ineffective [Unknown]
  - Drug dependence [Recovered/Resolved]

NARRATIVE: CASE EVENT DATE: 2011
